FAERS Safety Report 9378207 (Version 4)
Quarter: 2013Q4

REPORT INFORMATION
  Report Type: Report from Study
  Country: US (occurrence: US)
  Receive Date: 20130701
  Receipt Date: 20131115
  Transmission Date: 20140711
  Serious: Yes (Hospitalization)
  Sender: FDA-Public Use
  Company Number: US-GLAXOSMITHKLINE-B0904419A

PATIENT
  Age: 35 Year
  Sex: Male
  Weight: 85.2 kg

DRUGS (6)
  1. EZOGABINE [Suspect]
     Indication: PARTIAL SEIZURES
     Dates: start: 20130515, end: 20130621
  2. LEVETIRACETAM [Concomitant]
     Indication: EPILEPSY
     Dosage: 1500MG TWICE PER DAY
     Route: 048
     Dates: start: 20110214
  3. LACOSAMIDE [Concomitant]
     Indication: EPILEPSY
     Dosage: 300MG TWICE PER DAY
     Route: 048
     Dates: start: 20101018
  4. CARBAMAZEPINE [Concomitant]
     Indication: EPILEPSY
     Dosage: 600MG TWICE PER DAY
     Route: 048
     Dates: start: 20110623
  5. AMLODIPINE [Concomitant]
     Indication: HYPERTENSION
     Dosage: 5MG PER DAY
     Route: 048
  6. ATENOLOL [Concomitant]
     Indication: HYPERTENSION
     Dosage: 50MG PER DAY
     Route: 048

REACTIONS (1)
  - Toxic encephalopathy [Recovered/Resolved]
